FAERS Safety Report 4491824-3 (Version None)
Quarter: 2004Q4

REPORT INFORMATION
  Report Type: 
  Country: None (occurrence: None)
  Receive Date: 20041028
  Receipt Date: 20041028
  Transmission Date: 20050328
  Serious: No
  Sender: FDA-Public Use
  Company Number: None

PATIENT
  Age: 38 Year
  Sex: Male
  Weight: 70.3075 kg

DRUGS (2)
  1. SYMBYAX [Suspect]
     Indication: DRUG WITHDRAWAL SYNDROME
     Dosage: ONE   DAILY   ORAL
     Route: 048
     Dates: start: 20040505, end: 20040614
  2. PROZAC [Suspect]
     Indication: DEPRESSION
     Dosage: ONE   DAILY   ORAL
     Route: 048
     Dates: start: 20030303, end: 20041027

REACTIONS (9)
  - ABNORMAL BEHAVIOUR [None]
  - ALCOHOL USE [None]
  - CONFUSIONAL STATE [None]
  - DYSPHONIA [None]
  - IMPRISONMENT [None]
  - LEGAL PROBLEM [None]
  - MEMORY IMPAIRMENT [None]
  - MUSCULOSKELETAL STIFFNESS [None]
  - SPEECH DISORDER [None]
